FAERS Safety Report 7607018-6 (Version None)
Quarter: 2011Q3

REPORT INFORMATION
  Report Type: 
  Country: None (occurrence: None)
  Receive Date: 20110713
  Receipt Date: 20110707
  Transmission Date: 20111222
  Serious: Yes (Other)
  Sender: FDA-Public Use
  Company Number: FR-JNJFOC-20110608697

PATIENT
  Sex: Female
  Weight: 76 kg

DRUGS (9)
  1. DURAGESIC-100 [Suspect]
     Indication: PROCEDURAL PAIN
     Route: 062
     Dates: start: 20110530, end: 20110615
  2. ACETAMINOPHEN AND TRAMADOL HCL [Concomitant]
     Indication: ANALGESIC THERAPY
     Route: 048
     Dates: start: 20110513
  3. BISOPROLOL FUMARATE [Concomitant]
     Indication: HYPERTENSION
     Route: 048
     Dates: start: 20110513
  4. LERCANIDIPINE [Concomitant]
     Route: 065
     Dates: start: 20110513
  5. LOVENOX [Concomitant]
     Indication: THROMBOSIS PROPHYLAXIS
     Route: 050
     Dates: start: 20110513, end: 20110621
  6. RENITEC (ENALAPRIL) [Concomitant]
     Indication: HYPERTENSION
     Route: 048
  7. LERCANIDIPINE [Concomitant]
     Indication: HYPERTENSION
     Route: 048
  8. ACUPAN [Interacting]
     Indication: ANALGESIC THERAPY
     Route: 048
     Dates: start: 20110513
  9. TRAMADOL HCL [Concomitant]
     Route: 065

REACTIONS (5)
  - OEDEMA PERIPHERAL [None]
  - PAIN IN EXTREMITY [None]
  - DRUG INTERACTION [None]
  - SOMNOLENCE [None]
  - OFF LABEL USE [None]
